FAERS Safety Report 5098171-X (Version None)
Quarter: 2006Q3

REPORT INFORMATION
  Report Type: 
  Country: None (occurrence: None)
  Receive Date: 20060906
  Receipt Date: 20060512
  Transmission Date: 20061208
  Serious: No
  Sender: FDA-Public Use
  Company Number: A0605422A

PATIENT
  Age: 76 Year
  Sex: Male
  Weight: 68.2 kg

DRUGS (4)
  1. REQUIP [Suspect]
     Indication: PARKINSON'S DISEASE
     Dosage: 3MG THREE TIMES PER DAY
     Route: 048
  2. STALEVO 100 [Concomitant]
  3. FLORINEF [Concomitant]
     Indication: DRUG USE FOR UNKNOWN INDICATION
     Dosage: .1MG TWICE PER DAY
     Route: 048
  4. AMANTADINE HCL [Concomitant]
     Indication: DRUG USE FOR UNKNOWN INDICATION
     Dosage: 1CAP TWICE PER DAY
     Route: 048

REACTIONS (1)
  - OEDEMA PERIPHERAL [None]
